FAERS Safety Report 6192601-8 (Version None)
Quarter: 2009Q2

REPORT INFORMATION
  Report Type: 
  Country: None (occurrence: None)
  Receive Date: 20090518
  Receipt Date: 20090514
  Transmission Date: 20091009
  Serious: Yes (Life-Threatening, Hospitalization, Other)
  Sender: FDA-Public Use
  Company Number: NL-BAYER-200831880GPV

PATIENT
  Age: 71 Year
  Sex: Male
  Weight: 90 kg

DRUGS (13)
  1. SORAFENIB [Suspect]
     Indication: NON-SMALL CELL LUNG CANCER
     Dosage: TOTAL DAILY DOSE: 800 MG
     Route: 048
     Dates: start: 20081028, end: 20081201
  2. GEMZAR [Suspect]
     Indication: NON-SMALL CELL LUNG CANCER
     Route: 042
     Dates: start: 20081028
  3. CISPLATIN [Suspect]
     Indication: NON-SMALL CELL LUNG CANCER
     Route: 042
     Dates: start: 20081028
  4. TIMOPTIC [Concomitant]
     Indication: GLAUCOMA
     Dosage: 2
     Route: 065
     Dates: start: 19900101
  5. FRAXIPARIN [Concomitant]
     Indication: THROMBOSIS PROPHYLAXIS
     Route: 065
     Dates: start: 20081016, end: 20081026
  6. FORADIL [Concomitant]
     Indication: DYSPNOEA
     Dosage: 4 INH.
     Route: 065
     Dates: start: 20081016
  7. OXAZEPAM [Concomitant]
     Indication: PROPHYLAXIS
     Route: 065
     Dates: start: 20081021
  8. PRIMPERAN [Concomitant]
     Indication: PROPHYLAXIS OF NAUSEA AND VOMITING
     Route: 065
     Dates: start: 20081028
  9. IMODIUM [Concomitant]
     Indication: DIARRHOEA
     Route: 065
     Dates: start: 20081104, end: 20081111
  10. HIRUDOID [Concomitant]
     Indication: VASCULITIS
     Route: 065
     Dates: start: 20081104
  11. HALOPERIDOL [Concomitant]
     Indication: HICCUPS
     Route: 065
     Dates: start: 20081201
  12. BACLOFEN [Concomitant]
     Indication: MUSCLE SPASMS
     Route: 065
     Dates: start: 20081205, end: 20081211
  13. PANTOPRAZOL [Concomitant]
     Indication: PROPHYLAXIS
     Route: 065
     Dates: start: 20081204

REACTIONS (1)
  - PULMONARY EMBOLISM [None]
